FAERS Safety Report 20172342 (Version 3)
Quarter: 2022Q1

REPORT INFORMATION
  Report Type: Spontaneous
  Country: US (occurrence: US)
  Receive Date: 20211210
  Receipt Date: 20220208
  Transmission Date: 20220424
  Serious: Yes (Other)
  Sender: FDA-Public Use
  Company Number: US-HORIZON THERAPEUTICS-HZN-2021-009395

PATIENT

DRUGS (1)
  1. RAYOS [Suspect]
     Active Substance: PREDNISONE
     Indication: Giant cell arteritis
     Dosage: 5 MG, ONE TABLET NIGHTLY
     Route: 065

REACTIONS (7)
  - Brain injury [Unknown]
  - Carotid artery occlusion [Unknown]
  - Back disorder [Unknown]
  - Dysstasia [Unknown]
  - Speech disorder [Unknown]
  - Dysphonia [Unknown]
  - Oropharyngeal discomfort [Unknown]
